FAERS Safety Report 8303913-3 (Version None)
Quarter: 2012Q2

REPORT INFORMATION
  Report Type: 
  Country: None (occurrence: None)
  Receive Date: 20120420
  Receipt Date: 20120420
  Transmission Date: 20120825
  Serious: Yes (Hospitalization)
  Sender: FDA-Public Use
  Company Number: None

PATIENT
  Sex: Male

DRUGS (10)
  1. GLIPIZIDE [Concomitant]
  2. VITAMIN B1 TAB [Interacting]
  3. ZELBORAF 240MG GENENTECH [Suspect]
     Indication: MALIGNANT MELANOMA
     Dosage: 4 TABS BID PO - 4 BID
     Route: 048
  4. ASPIRIN [Concomitant]
  5. LISINOPRIL [Concomitant]
  6. LOVASTATIN [Concomitant]
  7. PREDNISONE [Concomitant]
  8. TRIAMTERENE AND HYDROCHLOROTHIAZIDE [Concomitant]
  9. VITAMIN E [Concomitant]
  10. ONDANSETRON [Concomitant]

REACTIONS (4)
  - RENAL IMPAIRMENT [None]
  - ASTHENIA [None]
  - CONFUSIONAL STATE [None]
  - BALANCE DISORDER [None]
